FAERS Safety Report 21174269 (Version 4)
Quarter: 2022Q4

REPORT INFORMATION
  Report Type: Spontaneous
  Country: US (occurrence: US)
  Receive Date: 20220804
  Receipt Date: 20221114
  Transmission Date: 20230113
  Serious: Yes (Death, Hospitalization, Other)
  Sender: FDA-Public Use
  Company Number: US-JAZZ-2022-US-025493

PATIENT

DRUGS (2)
  1. ZEPZELCA [Suspect]
     Active Substance: LURBINECTEDIN
     Indication: Small cell lung cancer
     Dosage: 5 MILLIGRAM, SINGLE
     Dates: start: 20220627, end: 20220716
  2. TOPOTECAN [Suspect]
     Active Substance: TOPOTECAN HYDROCHLORIDE
     Indication: Small cell lung cancer
     Dosage: UNK
     Dates: start: 20220720, end: 20220808

REACTIONS (7)
  - Acute myocardial infarction [Fatal]
  - Chronic respiratory failure [Fatal]
  - Haematuria [Fatal]
  - Chronic obstructive pulmonary disease [Fatal]
  - Pleural effusion [Fatal]
  - Anaemia [Fatal]
  - Drug intolerance [Unknown]

NARRATIVE: CASE EVENT DATE: 20220627
